FAERS Safety Report 25150693 (Version 5)
Quarter: 2025Q2

REPORT INFORMATION
  Report Type: Spontaneous
  Country: AU (occurrence: AU)
  Receive Date: 20250402
  Receipt Date: 20250617
  Transmission Date: 20250717
  Serious: Yes (Hospitalization)
  Sender: ASTELLAS
  Company Number: AU-ASTELLAS-2025-AER-016825

PATIENT
  Age: 69 Year
  Sex: Female

DRUGS (6)
  1. MIRABEGRON [Suspect]
     Active Substance: MIRABEGRON
     Indication: Product used for unknown indication
     Route: 048
  2. MIRABEGRON [Suspect]
     Active Substance: MIRABEGRON
     Route: 048
  3. MIRABEGRON [Suspect]
     Active Substance: MIRABEGRON
     Dosage: ACCIDENTLY DOUBLED UP ONE NIGHT
     Route: 065
  4. VESICARE [Suspect]
     Active Substance: SOLIFENACIN SUCCINATE
     Indication: Product used for unknown indication
     Route: 065
     Dates: start: 2011
  5. AMITRIPTYLINE [Concomitant]
     Active Substance: AMITRIPTYLINE
     Indication: Product used for unknown indication
     Route: 065
  6. AMITRIPTYLINE [Concomitant]
     Active Substance: AMITRIPTYLINE
     Route: 065

REACTIONS (13)
  - Accident [Unknown]
  - Brain injury [Unknown]
  - Loss of consciousness [Unknown]
  - Somnolence [Unknown]
  - Illness [Unknown]
  - Nightmare [Unknown]
  - Amnesia [Unknown]
  - Anosmia [Unknown]
  - Ageusia [Unknown]
  - Weight decreased [Unknown]
  - Uterine leiomyoma [Unknown]
  - Off label use [Unknown]
  - Wrong dose [Unknown]

NARRATIVE: CASE EVENT DATE: 20241106
